FAERS Safety Report 6702767-6 (Version None)
Quarter: 2010Q2

REPORT INFORMATION
  Report Type: 
  Country: None (occurrence: None)
  Receive Date: 20100428
  Receipt Date: 20100413
  Transmission Date: 20101027
  Serious: Yes (Other)
  Sender: FDA-Public Use
  Company Number: 2010001374

PATIENT
  Age: 71 Year
  Sex: Female
  Weight: 48.2 kg

DRUGS (9)
  1. TARCEVA [Suspect]
     Indication: LUNG ADENOCARCINOMA
     Dosage: 150 MG,QD,ORAL, 50 MG,QD,ORAL, 25 MG,QD,ORAL
     Route: 048
     Dates: start: 20080206, end: 20080330
  2. TARCEVA [Suspect]
     Indication: LUNG ADENOCARCINOMA
     Dosage: 150 MG,QD,ORAL, 50 MG,QD,ORAL, 25 MG,QD,ORAL
     Route: 048
     Dates: start: 20080330, end: 20080331
  3. TARCEVA [Suspect]
     Indication: LUNG ADENOCARCINOMA
     Dosage: 150 MG,QD,ORAL, 50 MG,QD,ORAL, 25 MG,QD,ORAL
     Route: 048
     Dates: start: 20080410
  4. NERIPROCT SUPPOSITORIES            (DIFLUCORTOLONE VALERATE) [Concomitant]
  5. POSTERISAN (POSTERISAN) [Concomitant]
  6. AMOBAN (ZOPICLONE) [Concomitant]
  7. PIRENOXINE (PIRENOXINE) [Concomitant]
  8. RIKKUNSHI-TO [Concomitant]
  9. SAIKO-KEISHI-TO [Concomitant]

REACTIONS (7)
  - BRONCHITIS [None]
  - DERMAL CYST [None]
  - HEPATIC FUNCTION ABNORMAL [None]
  - PARONYCHIA [None]
  - PRINZMETAL ANGINA [None]
  - RASH [None]
  - STOMATITIS [None]
